FAERS Safety Report 14603458 (Version 1)
Quarter: 2018Q1

REPORT INFORMATION
  Report Type: Spontaneous
  Country: US (occurrence: US)
  Receive Date: 20180305
  Receipt Date: 20180305
  Transmission Date: 20180509
  Serious: Yes (Death)
  Sender: FDA-Public Use
  Company Number: None

PATIENT
  Age: 89 Year
  Sex: Male

DRUGS (2)
  1. CALCIUM [Concomitant]
     Active Substance: CALCIUM
  2. GABAPENTIN. [Suspect]
     Active Substance: GABAPENTIN
     Indication: PAIN IN EXTREMITY
     Route: 048

REACTIONS (25)
  - Dehydration [None]
  - Renal failure [None]
  - Withdrawal syndrome [None]
  - Ill-defined disorder [None]
  - Insomnia [None]
  - Chest discomfort [None]
  - Tachycardia [None]
  - Arrhythmia [None]
  - Pulmonary oedema [None]
  - Chromaturia [None]
  - Secretion discharge [None]
  - Tremor [None]
  - Pneumonia [None]
  - Respiratory failure [None]
  - Dry eye [None]
  - Confusional state [None]
  - Amnesia [None]
  - Feeling abnormal [None]
  - Myocardial infarction [None]
  - Asthenia [None]
  - Endotracheal intubation [None]
  - Fluid intake restriction [None]
  - Rhinorrhoea [None]
  - Hypophagia [None]
  - Cerebral circulatory failure [None]

NARRATIVE: CASE EVENT DATE: 20180211
